FAERS Safety Report 5168807-3 (Version None)
Quarter: 2006Q4

REPORT INFORMATION
  Report Type: 
  Country: None (occurrence: None)
  Receive Date: 20061211
  Receipt Date: 20061127
  Transmission Date: 20070319
  Serious: Yes (Disabling)
  Sender: FDA-Public Use
  Company Number: PHNR2006AU01620

PATIENT
  Age: 75 Year
  Sex: Male

DRUGS (1)
  1. CAFERGOT [Suspect]
     Dosage: UNK, PRN
     Route: 054
     Dates: start: 19680101, end: 20050801

REACTIONS (2)
  - MITRAL VALVE INCOMPETENCE [None]
  - TRICUSPID VALVE INCOMPETENCE [None]
